FAERS Safety Report 7439849-X (Version None)
Quarter: 2011Q2

REPORT INFORMATION
  Report Type: 
  Country: None (occurrence: None)
  Receive Date: 20110427
  Receipt Date: 20101222
  Transmission Date: 20111010
  Serious: No
  Sender: FDA-Public Use
  Company Number: US-MYLANLABS-2010S1023743

PATIENT
  Sex: Female

DRUGS (1)
  1. DILTIAZEM HCL [Suspect]
     Indication: BLOOD PRESSURE INCREASED
     Route: 048
     Dates: start: 20100801

REACTIONS (3)
  - DRUG INEFFECTIVE [None]
  - MEDICATION RESIDUE [None]
  - BLOOD PRESSURE INCREASED [None]
